FAERS Safety Report 16141346 (Version 2)
Quarter: 2019Q2

REPORT INFORMATION
  Report Type: Spontaneous
  Country: US (occurrence: US)
  Receive Date: 20190401
  Receipt Date: 20190603
  Transmission Date: 20190711
  Serious: No
  Sender: FDA-Public Use
  Company Number: US-PFIZER INC-2019133457

PATIENT
  Age: 74 Year
  Sex: Male

DRUGS (3)
  1. SUTENT [Suspect]
     Active Substance: SUNITINIB MALATE
     Indication: RENAL CANCER
     Dosage: 20 MG, 1X/DAY
     Dates: start: 20181229
  2. BUPROPRINE [Concomitant]
     Dosage: REGULAR PILLS
  3. WARFARIN [Concomitant]
     Active Substance: WARFARIN
     Dosage: (REGULAR PILLS)

REACTIONS (2)
  - Dysgeusia [Recovered/Resolved]
  - Eating disorder [Recovered/Resolved]

NARRATIVE: CASE EVENT DATE: 20190201
